FAERS Safety Report 21330392 (Version 1)
Quarter: 2022Q3

REPORT INFORMATION
  Report Type: Spontaneous
  Country: BE (occurrence: BE)
  Receive Date: 20220913
  Receipt Date: 20220913
  Transmission Date: 20221026
  Serious: Yes (Other)
  Sender: FDA-Public Use
  Company Number: None

PATIENT
  Age: 46 Year
  Sex: Male
  Weight: 104 kg

DRUGS (8)
  1. PANTOPRAZOLE SODIUM [Interacting]
     Active Substance: PANTOPRAZOLE SODIUM
     Indication: Oesophagitis
     Dosage: 80 MILLIGRAM, QD
     Route: 048
     Dates: start: 20220628, end: 20220714
  2. PANTOPRAZOLE SODIUM [Interacting]
     Active Substance: PANTOPRAZOLE SODIUM
     Indication: Gastroduodenal ulcer
  3. PALIPERIDONE PALMITATE [Interacting]
     Active Substance: PALIPERIDONE PALMITATE
     Dosage: UNK
     Route: 065
  4. ZYPREXA [Interacting]
     Active Substance: OLANZAPINE
     Dosage: UNK
     Route: 065
  5. ESOMEPRAZOLE SODIUM [Interacting]
     Active Substance: ESOMEPRAZOLE SODIUM
     Indication: Oesophagitis
     Dosage: 40 MILLIGRAM, QD
     Route: 048
     Dates: start: 20220822, end: 20220829
  6. ESOMEPRAZOLE SODIUM [Interacting]
     Active Substance: ESOMEPRAZOLE SODIUM
     Indication: Gastroduodenal ulcer
  7. PIROXICAM [Concomitant]
     Active Substance: PIROXICAM
     Dosage: UNK
  8. LORAZEPAM [Concomitant]
     Active Substance: LORAZEPAM
     Dosage: UNK

REACTIONS (3)
  - Palpitations [Recovered/Resolved]
  - Drug interaction [Recovered/Resolved]
  - Hallucination, auditory [Recovered/Resolved]
